FAERS Safety Report 5375108-7 (Version None)
Quarter: 2007Q2

REPORT INFORMATION
  Report Type: 
  Country: None (occurrence: None)
  Receive Date: 20070629
  Receipt Date: 20060601
  Transmission Date: 20071010
  Serious: Yes (Hospitalization)
  Sender: FDA-Public Use
  Company Number: US-ASTRAZENECA-2006UW10568

PATIENT
  Age: 63 Year
  Sex: Female
  Weight: 88.5 kg

DRUGS (1)
  1. TAMOXIFEN CITRATE [Suspect]
     Indication: BREAST CANCER STAGE I
     Route: 048
     Dates: start: 20020201, end: 20030501

REACTIONS (3)
  - ENDOMETRIAL HYPERPLASIA [None]
  - UTERINE HAEMORRHAGE [None]
  - UTERINE POLYP [None]
